FAERS Safety Report 18981390 (Version 3)
Quarter: 2021Q2

REPORT INFORMATION
  Report Type: Report from Study
  Country: US (occurrence: US)
  Receive Date: 20210308
  Receipt Date: 20210401
  Transmission Date: 20210717
  Serious: No
  Sender: FDA-Public Use
  Company Number: NVSC2021US053400

PATIENT
  Sex: Female

DRUGS (1)
  1. PIQRAY [Suspect]
     Active Substance: ALPELISIB
     Indication: PRODUCT USED FOR UNKNOWN INDICATION
     Dosage: UNK
     Route: 048
     Dates: start: 20210301

REACTIONS (7)
  - Dyspnoea [Unknown]
  - Pain [Unknown]
  - Pyrexia [Unknown]
  - Pruritus [Unknown]
  - Influenza [Unknown]
  - Diarrhoea [Unknown]
  - Rash [Unknown]
